FAERS Safety Report 22000567 (Version 1)
Quarter: 2023Q1

REPORT INFORMATION
  Report Type: Spontaneous
  Country: CA (occurrence: CA)
  Receive Date: 20230216
  Receipt Date: 20230216
  Transmission Date: 20230418
  Serious: Yes (Other)
  Sender: FDA-Public Use
  Company Number: CA-PFIZER INC-202101190047

PATIENT
  Age: 33 Year
  Sex: Female

DRUGS (10)
  1. RAPAMUNE [Suspect]
     Active Substance: SIROLIMUS
     Indication: Congenital anomaly
     Dosage: 1 MG, DAILY
     Route: 048
  2. RAPAMUNE [Suspect]
     Active Substance: SIROLIMUS
     Dosage: 1 MG, DAILY
     Route: 048
     Dates: start: 202109
  3. RAPAMUNE [Suspect]
     Active Substance: SIROLIMUS
     Dosage: 2 MG, DAILY
     Route: 048
     Dates: start: 202203
  4. APIXABAN [Concomitant]
     Active Substance: APIXABAN
     Dosage: 5 MG, 2X/DAY
     Route: 048
  5. AMITRIPTYLINE [Concomitant]
     Active Substance: AMITRIPTYLINE
     Dosage: UNK
  6. CELEBREX [Concomitant]
     Active Substance: CELECOXIB
     Dosage: 200 MG, 2X/DAY
  7. PEN-V [PHENOXYMETHYLPENICILLIN POTASSIUM] [Concomitant]
     Dosage: 300 MG
  8. PANTOPRAZOLE [Concomitant]
     Active Substance: PANTOPRAZOLE
     Dosage: UNK
  9. TYLENOL WITH CODEINE [Concomitant]
     Active Substance: ACETAMINOPHEN\CODEINE PHOSPHATE
     Dosage: UNK
  10. WARFARIN [Concomitant]
     Active Substance: WARFARIN
     Indication: Anticoagulant therapy
     Dosage: UNK
     Dates: start: 2006

REACTIONS (5)
  - Type 1 diabetes mellitus [Unknown]
  - Drug effective for unapproved indication [Unknown]
  - Off label use [Unknown]
  - Pain in extremity [Recovered/Resolved]
  - Mouth ulceration [Unknown]
